FAERS Safety Report 14450664 (Version 1)
Quarter: 2018Q1

REPORT INFORMATION
  Report Type: Spontaneous
  Country: FR (occurrence: FR)
  Receive Date: 20180129
  Receipt Date: 20180129
  Transmission Date: 20180509
  Serious: Yes (Other)
  Sender: FDA-Public Use
  Company Number: FR-MERCK KGAA-2040933

PATIENT
  Age: 73 Year
  Sex: Female

DRUGS (2)
  1. NOVOTHYROX [Suspect]
     Active Substance: LEVOTHYROXINE SODIUM
     Indication: RADIOACTIVE IODINE THERAPY
     Dates: start: 201704, end: 201710
  2. NOVOTHYROX [Suspect]
     Active Substance: LEVOTHYROXINE SODIUM
     Dates: start: 201711

REACTIONS (10)
  - Loss of consciousness [None]
  - Muscle spasms [None]
  - Dizziness [None]
  - Oedema peripheral [None]
  - Weight increased [None]
  - Musculoskeletal stiffness [None]
  - Blood thyroid stimulating hormone abnormal [None]
  - Malaise [None]
  - Face oedema [None]
  - Fatigue [None]

NARRATIVE: CASE EVENT DATE: 2017
